FAERS Safety Report 6150077-0 (Version None)
Quarter: 2009Q2

REPORT INFORMATION
  Report Type: 
  Country: None (occurrence: None)
  Receive Date: 20090407
  Receipt Date: 20090407
  Transmission Date: 20091009
  Serious: Yes (Other)
  Sender: FDA-Public Use
  Company Number: None

PATIENT
  Sex: Female
  Weight: 63.9572 kg

DRUGS (2)
  1. RISPERIDONE [Suspect]
     Indication: ABNORMAL BEHAVIOUR
     Dosage: 4MG BID PO
     Route: 048
     Dates: start: 20081201, end: 20081211
  2. RISPERIDONE [Suspect]
     Indication: ENCEPHALOPATHY
     Dosage: 4MG BID PO
     Route: 048
     Dates: start: 20081201, end: 20081211

REACTIONS (2)
  - DELUSION [None]
  - HALLUCINATION [None]
